FAERS Safety Report 7266812-4 (Version None)
Quarter: 2011Q1

REPORT INFORMATION
  Report Type: 
  Country: None (occurrence: None)
  Receive Date: 20110121
  Receipt Date: 20110111
  Transmission Date: 20110831
  Serious: Yes (Hospitalization)
  Sender: FDA-Public Use
  Company Number: WAES 1005USA01351

PATIENT
  Age: 54 Year
  Sex: Female
  Weight: 76.2043 kg

DRUGS (8)
  1. PLACEBO [Suspect]
     Indication: ACUTE CORONARY SYNDROME
     Dosage: PO
     Route: 048
     Dates: start: 20090723
  2. LISINOPRIL [Concomitant]
  3. SEROQUEL [Concomitant]
  4. ZOCOR [Suspect]
     Indication: ACUTE CORONARY SYNDROME
     Dosage: PO
     Route: 048
     Dates: start: 20090723
  5. CYMBALTA [Concomitant]
  6. PLAVIX [Concomitant]
  7. METOPROLOL [Concomitant]
  8. ASPIRIN [Concomitant]

REACTIONS (4)
  - DIVERTICULUM [None]
  - LARGE INTESTINAL ULCER [None]
  - COLITIS ISCHAEMIC [None]
  - HAEMANGIOMA OF LIVER [None]
